FAERS Safety Report 6261598-4 (Version None)
Quarter: 2009Q3

REPORT INFORMATION
  Report Type: 
  Country: None (occurrence: None)
  Receive Date: 20090707
  Receipt Date: 20090707
  Transmission Date: 20100115
  Serious: Yes (Hospitalization)
  Sender: FDA-Public Use
  Company Number: None

PATIENT
  Sex: Female
  Weight: 46.72 kg

DRUGS (2)
  1. CARBOPLATIN [Suspect]
     Dosage: 588 MG
     Dates: end: 20090623
  2. TAXOL [Suspect]
     Dosage: 264 MG
     Dates: end: 20090623

REACTIONS (3)
  - DIARRHOEA [None]
  - NEUTROPHIL COUNT DECREASED [None]
  - SEPSIS [None]
